FAERS Safety Report 10093828 (Version 1)
Quarter: 2014Q2

REPORT INFORMATION
  Report Type: Spontaneous
  Country: US (occurrence: US)
  Receive Date: 20140421
  Receipt Date: 20140421
  Transmission Date: 20141212
  Serious: No
  Sender: FDA-Public Use
  Company Number: US-SANOFI-AVENTIS-2013SA083600

PATIENT
  Age: 75 Year
  Sex: Female
  Weight: 58 kg

DRUGS (20)
  1. ALLEGRA [Suspect]
     Indication: HYPERSENSITIVITY
     Dosage: DAILY DOSE MID-DAY.
     Route: 048
     Dates: start: 20130807, end: 20130814
  2. ALLEGRA [Suspect]
     Indication: HEADACHE
     Dosage: DAILY DOSE MID-DAY.
     Route: 048
     Dates: start: 20130807, end: 20130814
  3. PROPAFENONE HYDROCHLORIDE [Concomitant]
  4. AMLODIPINE [Concomitant]
  5. DIGOXIN [Concomitant]
  6. LEVOTHYROXINE [Concomitant]
  7. LISINOPRIL [Concomitant]
  8. ISORBIDE [Concomitant]
  9. OMEPRAZOLE [Concomitant]
  10. PRAVASTATIN [Concomitant]
  11. PLAVIX [Concomitant]
  12. VENLAFAXINE [Concomitant]
  13. ZYRTEC [Concomitant]
  14. MULTIVITAMINS [Concomitant]
  15. VITAMIN D [Concomitant]
  16. VITAMIN E [Concomitant]
  17. FISH OIL [Concomitant]
  18. ALL OTHER THERAPEUTIC PRODUCTS [Concomitant]
  19. VITAMIN B6 [Concomitant]
  20. CYANOCOBALAMIN [Concomitant]

REACTIONS (2)
  - Headache [Recovered/Resolved]
  - Therapeutic response decreased [Unknown]
